FAERS Safety Report 23443853 (Version 2)
Quarter: 2024Q1

REPORT INFORMATION
  Report Type: Report from Study
  Country: US (occurrence: US)
  Receive Date: 20240125
  Receipt Date: 20240306
  Transmission Date: 20240410
  Serious: Yes (Hospitalization)
  Sender: FDA-Public Use
  Company Number: US-PFIZER INC-PV202400002141

PATIENT
  Age: 75 Year
  Sex: Male
  Weight: 58.957 kg

DRUGS (7)
  1. LINEZOLID [Suspect]
     Active Substance: LINEZOLID
     Dosage: UNK
     Route: 042
  2. NUZYRA [Suspect]
     Active Substance: OMADACYCLINE
     Indication: Pneumonia bacterial
     Dosage: VIA G-TUBE (DISSOLVED IN WATER AND ADMINISTERED WITH A SYRINGE)
     Dates: start: 20231117
  3. NUZYRA [Suspect]
     Active Substance: OMADACYCLINE
     Dosage: 300 MG, 1X/DAY
     Dates: start: 20231117
  4. AMIKACIN [Suspect]
     Active Substance: AMIKACIN
     Dosage: UNK
     Route: 042
  5. TOSUFLOXACIN [Suspect]
     Active Substance: TOSUFLOXACIN
     Dosage: UNK
     Route: 042
  6. ROPINIROLE [Concomitant]
     Active Substance: ROPINIROLE
     Dosage: 0.25 MG DAILY AT 0530
  7. ROPINIROLE [Concomitant]
     Active Substance: ROPINIROLE
     Dosage: AT NIGHT BEFORE BED

REACTIONS (4)
  - Internal haemorrhage [Unknown]
  - Feeling hot [Recovering/Resolving]
  - Dyspnoea [Unknown]
  - Diarrhoea [Unknown]

NARRATIVE: CASE EVENT DATE: 20230101
